FAERS Safety Report 4916931-X (Version None)
Quarter: 2006Q1

REPORT INFORMATION
  Report Type: 
  Country: None (occurrence: None)
  Receive Date: 20060214
  Receipt Date: 20060201
  Transmission Date: 20060701
  Serious: Yes (Disabling, Other)
  Sender: FDA-Public Use
  Company Number: 2005171342

PATIENT
  Age: 74 Year
  Sex: Female

DRUGS (7)
  1. FELDENE [Suspect]
     Indication: PAIN
     Dosage: 20 MG RECTAL
     Route: 054
  2. BELLADONNA (BELLADONNA) [Concomitant]
     Indication: EPILEPSY
  3. CAMPHOR (CAMPHOR) [Concomitant]
  4. NEOSALDINA (CAFFEINE, ISOMETHEPTENE, METAMIZOLE SODIUM) [Concomitant]
     Indication: ILL-DEFINED DISORDER
  5. CATAFLAM [Concomitant]
  6. METHYL SALICYLATE (METHYL SALICYLATE) [Concomitant]
  7. GINKGO BILOBA (GINKGO BILOBA) [Concomitant]

REACTIONS (11)
  - ANAL DISCOMFORT [None]
  - ANAL HAEMORRHAGE [None]
  - BEDRIDDEN [None]
  - DIARRHOEA [None]
  - DIFFICULTY IN WALKING [None]
  - FALL [None]
  - FLATULENCE [None]
  - HAEMORRHOIDS [None]
  - SPINAL FRACTURE [None]
  - TENDONITIS [None]
  - VULVOVAGINAL DISCOMFORT [None]
